FAERS Safety Report 11212241 (Version 1)
Quarter: 2015Q2

REPORT INFORMATION
  Report Type: Spontaneous
  Country: US (occurrence: US)
  Receive Date: 20150623
  Receipt Date: 20150623
  Transmission Date: 20150821
  Serious: No
  Sender: FDA-Public Use
  Company Number: US-PFIZER INC-2015205402

PATIENT
  Sex: Female

DRUGS (1)
  1. JUNIOR STRENGTH ADVIL [Suspect]
     Active Substance: IBUPROFEN
     Dosage: 1 DF, UNK
     Route: 048
     Dates: start: 20150617

REACTIONS (4)
  - Hypoaesthesia oral [Unknown]
  - Glossodynia [Unknown]
  - Paraesthesia oral [Unknown]
  - Product quality issue [Unknown]

NARRATIVE: CASE EVENT DATE: 20150617
